FAERS Safety Report 14985875 (Version 6)
Quarter: 2020Q3

REPORT INFORMATION
  Report Type: Spontaneous
  Country: JP (occurrence: JP)
  Receive Date: 20180607
  Receipt Date: 20200921
  Transmission Date: 20201102
  Serious: Yes (Hospitalization, Other)
  Sender: FDA-Public Use
  Company Number: JP-BRISTOL-MYERS SQUIBB COMPANY-BMS-2017-106434

PATIENT
  Age: 74 Year
  Sex: Male
  Weight: 68.5 kg

DRUGS (15)
  1. PREDONINE [Suspect]
     Active Substance: PREDNISOLONE
     Dosage: 13 MG, UNK
     Route: 048
     Dates: start: 2018
  2. OPDIVO [Suspect]
     Active Substance: NIVOLUMAB
     Dosage: 170 MG, UNK
     Route: 041
     Dates: start: 20171013, end: 20171110
  3. OPDIVO [Suspect]
     Active Substance: NIVOLUMAB
     Dosage: 180 MG, UNK
     Route: 041
     Dates: start: 20171124, end: 20180622
  4. OPDIVO [Suspect]
     Active Substance: NIVOLUMAB
     Dosage: 174 MG, UNK
     Route: 041
     Dates: start: 20170929, end: 20170929
  5. PREDONINE [Suspect]
     Active Substance: PREDNISOLONE
     Dosage: 27.5 MG, PER DAY
     Route: 048
     Dates: start: 20180105, end: 20180118
  6. TRAZENTA [Suspect]
     Active Substance: LINAGLIPTIN
     Indication: DIABETES MELLITUS
     Dosage: 5 MILLIGRAM
     Route: 048
  7. PREDONINE [Suspect]
     Active Substance: PREDNISOLONE
     Dosage: 25 MG, PER DAY
     Route: 048
     Dates: start: 20180119, end: 20180201
  8. PREDONINE [Suspect]
     Active Substance: PREDNISOLONE
     Dosage: 22.5 MG, PER DAY
     Route: 048
     Dates: start: 20180202, end: 20180301
  9. PREDONINE [Suspect]
     Active Substance: PREDNISOLONE
     Dosage: 30 MG, PER DAY
     Dates: start: 20171106, end: 20180104
  10. PREDONINE [Suspect]
     Active Substance: PREDNISOLONE
     Dosage: 20 MG, PER DAY
     Route: 048
     Dates: start: 20180302, end: 20180426
  11. PREDONINE [Suspect]
     Active Substance: PREDNISOLONE
     Dosage: 15 MG, PER DAY
     Route: 048
     Dates: start: 20180706
  12. PREDONINE [Suspect]
     Active Substance: PREDNISOLONE
     Dosage: 17.5 MG, PRE DAY
     Route: 048
     Dates: start: 20180427, end: 20180705
  13. OPDIVO [Suspect]
     Active Substance: NIVOLUMAB
     Indication: RENAL CELL CARCINOMA
     Dosage: 196 MG, UNK
     Route: 041
     Dates: start: 20170814, end: 20170814
  14. OPDIVO [Suspect]
     Active Substance: NIVOLUMAB
     Dosage: 175 MG, UNK
     Route: 041
     Dates: start: 20170828, end: 20170915
  15. PREDONINE [Suspect]
     Active Substance: PREDNISOLONE
     Indication: PEMPHIGOID
     Dosage: 10 MG, PER DAY
     Route: 065
     Dates: start: 20171023, end: 20171105

REACTIONS (2)
  - Malignant neoplasm progression [Unknown]
  - Pemphigoid [Not Recovered/Not Resolved]

NARRATIVE: CASE EVENT DATE: 20171023
